FAERS Safety Report 7370240-0 (Version None)
Quarter: 2011Q1

REPORT INFORMATION
  Report Type: 
  Country: None (occurrence: None)
  Receive Date: 20110323
  Receipt Date: 20110314
  Transmission Date: 20110831
  Serious: Yes (Other)
  Sender: FDA-Public Use
  Company Number: PHHY2011GB22179

PATIENT
  Age: 76 Year
  Sex: Male
  Weight: 68 kg

DRUGS (6)
  1. ROPINIROLE [Concomitant]
     Indication: PARKINSON'S DISEASE
     Dosage: 1 MG, QD
     Route: 048
  2. MADOPAR CR [Concomitant]
     Indication: PARKINSON'S DISEASE
     Dosage: 125 MG, QD
     Route: 048
     Dates: start: 20110125
  3. RAMIPRIL [Concomitant]
     Indication: HYPERTENSION
     Dosage: 10 MG, DAILY
     Route: 048
  4. COMTESS [Suspect]
     Dosage: UNK
     Route: 048
     Dates: start: 20101026, end: 20110202
  5. MADOPAR [Concomitant]
     Indication: PARKINSON'S DISEASE
     Dosage: 125 MG, QD
     Route: 048
     Dates: start: 20100801
  6. QUININE SULFATE [Concomitant]
     Indication: MUSCLE SPASMS
     Dosage: 300 MG, QD
     Route: 048

REACTIONS (3)
  - PROSTATITIS [None]
  - URINARY INCONTINENCE [None]
  - POLLAKIURIA [None]
